FAERS Safety Report 6075989-8 (Version None)
Quarter: 2009Q1

REPORT INFORMATION
  Report Type: 
  Country: None (occurrence: None)
  Receive Date: 20090209
  Receipt Date: 20090123
  Transmission Date: 20090719
  Serious: Yes (Hospitalization, Congenital Anomaly)
  Sender: FDA-Public Use
  Company Number: B0557035A

PATIENT
  Sex: Female

DRUGS (6)
  1. LAMIVUDINE [Suspect]
     Indication: ANTIVIRAL PROPHYLAXIS
     Dosage: UNK/UNK/INTRAVENOUS
     Route: 042
  2. ZIDOVUDINE [Suspect]
     Indication: ANTIVIRAL PROPHYLAXIS
     Dosage: UNK/UNK/INTRAVENOUS
     Route: 042
  3. COMBIVIR [Suspect]
     Indication: HIV INFECTION
     Dosage: UNK/UNK/TRANSPLACENTARY
     Route: 064
  4. NELFINAVIR MESYLATE (FORMULATION UNKNOWN) (NELFINAVIR MESYLATE) [Suspect]
     Indication: HIV INFECTION
     Dosage: UNK/UNK/TRANSPLACENTARY
     Route: 064
  5. AMOX.TRIHYD+POT.CLAVULAN [Concomitant]
  6. GENTAMICIN SULFATE [Concomitant]

REACTIONS (14)
  - DISSEMINATED INTRAVASCULAR COAGULATION [None]
  - HAEMATOCHEZIA [None]
  - HYPERTENSION [None]
  - HYPOTONIA NEONATAL [None]
  - IMPAIRED GASTRIC EMPTYING [None]
  - INTESTINAL DILATATION [None]
  - LUNG DISORDER [None]
  - MATERNAL DRUGS AFFECTING FOETUS [None]
  - NECROTISING ENTEROCOLITIS NEONATAL [None]
  - PNEUMATOSIS INTESTINALIS [None]
  - POST PROCEDURAL COMPLICATION [None]
  - THYROID DISORDER [None]
  - TRISOMY 21 [None]
  - VENTRICULAR SEPTAL DEFECT [None]
